FAERS Safety Report 5060136-1 (Version None)
Quarter: 2006Q3

REPORT INFORMATION
  Report Type: 
  Country: None (occurrence: None)
  Receive Date: 20060719
  Receipt Date: 20060707
  Transmission Date: 20061208
  Serious: Yes (Other)
  Sender: FDA-Public Use
  Company Number: 805#9#2006-00083

PATIENT
  Sex: Female

DRUGS (5)
  1. ALPROSTADIL [Suspect]
     Indication: HEART DISEASE CONGENITAL
     Route: 041
     Dates: start: 20041201, end: 20041209
  2. ALPROSTADIL [Concomitant]
  3. FUROSEMIDE [Concomitant]
  4. SPIRONOLACTONE [Concomitant]
  5. CALCIUM GLUCONATE [Concomitant]

REACTIONS (1)
  - INFANTILE APNOEIC ATTACK [None]
